FAERS Safety Report 7774959-9 (Version None)
Quarter: 2011Q3

REPORT INFORMATION
  Report Type: 
  Country: None (occurrence: None)
  Receive Date: 20110923
  Receipt Date: 20110916
  Transmission Date: 20111222
  Serious: Yes (Other)
  Sender: FDA-Public Use
  Company Number: PHHY2011JP81856

PATIENT

DRUGS (13)
  1. RABEPRAZOLE SODIUM [Concomitant]
     Indication: GASTROOESOPHAGEAL REFLUX DISEASE
     Dosage: 10 MG, UNK
     Route: 048
  2. WELL-BI TABLETS [Suspect]
     Indication: HYPERTENSION
     Dosage: 5 MG, UNK
     Route: 048
     Dates: start: 20100401, end: 20110912
  3. ETODOLAC [Concomitant]
     Dosage: 200 MG, UNK
     Route: 048
  4. DOXAZOSIN MESYLATE [Suspect]
     Indication: HYPERTENSION
     Dosage: 2 MG, UNK
     Route: 048
     Dates: end: 20110912
  5. EVISTA [Concomitant]
     Dosage: 60 MG, UNK
     Route: 048
  6. TM [Concomitant]
     Dosage: 3.9 G, UNK
     Route: 048
  7. MERISLON [Concomitant]
     Dosage: 6 MG, UNK
     Route: 048
  8. TANATRIL [Concomitant]
     Dosage: 5 MG, UNK
  9. PRORENAL [Concomitant]
     Dosage: 15 UG, UNK
     Route: 048
  10. METHYLCOBOL [Concomitant]
     Dosage: 1.5 MG, UNK
     Route: 048
  11. BUP-4 [Concomitant]
     Dosage: 10 MG, UNK
     Route: 048
  12. BLADDERON [Concomitant]
     Dosage: 600 MG, UNK
     Route: 048
  13. MYONAL [Concomitant]
     Route: 048

REACTIONS (2)
  - ATRIOVENTRICULAR BLOCK [None]
  - BRADYCARDIA [None]
